FAERS Safety Report 9191795 (Version 2)
Quarter: 2013Q4

REPORT INFORMATION
  Report Type: Spontaneous
  Country: US (occurrence: US)
  Receive Date: 20130327
  Receipt Date: 20131115
  Transmission Date: 20140711
  Serious: Yes (Hospitalization, Other)
  Sender: FDA-Public Use
  Company Number: US-BIOGENIDEC-2013BI026648

PATIENT
  Age: 54 Year
  Sex: Female

DRUGS (4)
  1. AVONEX [Suspect]
     Indication: MULTIPLE SCLEROSIS
     Route: 030
     Dates: start: 20120306, end: 20131008
  2. VITAMIN D [Concomitant]
  3. VITAMIN B12 [Concomitant]
  4. FOLIC ACID [Concomitant]

REACTIONS (17)
  - Ankle fracture [Not Recovered/Not Resolved]
  - Cerebrovascular accident [Recovered/Resolved]
  - Hypoaesthesia [Not Recovered/Not Resolved]
  - Peripheral coldness [Not Recovered/Not Resolved]
  - Central nervous system lesion [Not Recovered/Not Resolved]
  - Gait disturbance [Not Recovered/Not Resolved]
  - Personality change [Not Recovered/Not Resolved]
  - Amnesia [Not Recovered/Not Resolved]
  - Paranoia [Not Recovered/Not Resolved]
  - Visual impairment [Not Recovered/Not Resolved]
  - Folate deficiency [Not Recovered/Not Resolved]
  - Fall [Recovered/Resolved]
  - Dementia [Recovered/Resolved]
  - Bladder disorder [Recovered/Resolved]
  - Depression [Not Recovered/Not Resolved]
  - Dizziness [Not Recovered/Not Resolved]
  - Decreased appetite [Not Recovered/Not Resolved]
